FAERS Safety Report 8771325 (Version 1)
Quarter: 2012Q4

REPORT INFORMATION
  Report Type: 
  Country: US (occurrence: US)
  Receive Date: 20120905
  Receipt Date: 20120905
  Transmission Date: 20130627
  Serious: No
  Sender: FDA-Public Use
  Company Number: US-009507513-1208USA008534

PATIENT

DRUGS (12)
  1. MIRALAX [Suspect]
     Indication: CONSTIPATION
     Dosage: 17 g, qd
     Route: 048
     Dates: start: 201110
  2. MIRALAX [Suspect]
     Indication: MEDICAL OBSERVATION
  3. INSULIN [Concomitant]
     Indication: DIABETES MELLITUS
     Dosage: UNK, Unknown
     Route: 065
  4. HYDROCHLOROTHIAZIDE (+) LISINOPRIL [Concomitant]
     Indication: DIABETES MELLITUS
     Dosage: UNK, Unknown
     Route: 065
  5. OMEPRAZOLE [Concomitant]
     Indication: IMPAIRED GASTRIC EMPTYING
     Dosage: UNK, Unknown
     Route: 065
  6. ALIGN [Concomitant]
     Indication: IMPAIRED GASTRIC EMPTYING
     Dosage: UNK, Unknown
     Route: 065
  7. VENLAFAXINE HYDROCHLORIDE [Concomitant]
     Indication: ANXIETY
     Dosage: UNK, Unknown
     Route: 065
  8. PREMPRO [Concomitant]
     Indication: MENOPAUSE
     Dosage: UNK, Unknown
     Route: 065
  9. SYNTHROID [Concomitant]
     Indication: THYROID DISORDER
     Dosage: UNK, Unknown
     Route: 065
  10. ASPIRIN CALCIUM [Concomitant]
     Indication: PRODUCT USED FOR UNKNOWN INDICATION
     Dosage: UNK, Unknown
     Route: 065
  11. VITAMIN D (UNSPECIFIED) [Concomitant]
     Indication: PRODUCT USED FOR UNKNOWN INDICATION
     Dosage: UNK, Unknown
     Route: 065
  12. CYANOCOBALAMIN [Concomitant]
     Indication: PRODUCT USED FOR UNKNOWN INDICATION
     Dosage: UNK, Unknown
     Route: 065

REACTIONS (3)
  - Drug ineffective for unapproved indication [Unknown]
  - Incorrect drug administration duration [Unknown]
  - Off label use [Unknown]
